FAERS Safety Report 12214915 (Version 13)
Quarter: 2018Q1

REPORT INFORMATION
  Report Type: Report from Study
  Country: CO (occurrence: CO)
  Receive Date: 20160328
  Receipt Date: 20180221
  Transmission Date: 20180508
  Serious: Yes (Hospitalization, Other)
  Sender: FDA-Public Use
  Company Number: PHHY2016CO039563

PATIENT
  Age: 56 Year
  Sex: Female
  Weight: 52 kg

DRUGS (14)
  1. REVOLADE [Suspect]
     Active Substance: ELTROMBOPAG
     Indication: IMMUNE THROMBOCYTOPENIC PURPURA
     Dosage: 25 MG, QD
     Route: 048
     Dates: start: 20150101
  2. REVOLADE [Suspect]
     Active Substance: ELTROMBOPAG
     Dosage: 4 DF, QD
     Route: 048
     Dates: start: 20160101
  3. FOLIC ACID. [Concomitant]
     Active Substance: FOLIC ACID
     Indication: PLATELET DISORDER
     Dosage: 1 MG, QD
     Route: 065
  4. DIPHENHYDRAMINE. [Concomitant]
     Active Substance: DIPHENHYDRAMINE
     Indication: BRONCHITIS
     Dosage: 5 ML, Q12H (2 SPOONS DAILY)
     Route: 048
     Dates: start: 20160417
  5. OMEPRAZOLE. [Concomitant]
     Active Substance: OMEPRAZOLE
     Indication: GASTRITIS
     Dosage: 20 MG, QD
     Route: 048
  6. OMEPRAZOLE. [Concomitant]
     Active Substance: OMEPRAZOLE
     Indication: DYSPEPSIA
  7. OMEPRAZOLE. [Concomitant]
     Active Substance: OMEPRAZOLE
     Indication: ABDOMINAL PAIN UPPER
     Dosage: UNK
     Route: 048
     Dates: start: 20160622
  8. MYLANTA [Concomitant]
     Active Substance: ALUMINUM HYDROXIDE\DIMETHICONE\MAGNESIUM HYDROXIDE
     Indication: GASTROOESOPHAGEAL REFLUX DISEASE
     Route: 065
  9. ALUMINIUM HYDROXIDE [Concomitant]
     Active Substance: ALUMINUM HYDROXIDE
     Indication: PRODUCT USED FOR UNKNOWN INDICATION
     Dosage: QID
     Route: 048
  10. DIPHENHYDRAMINE. [Concomitant]
     Active Substance: DIPHENHYDRAMINE
     Indication: COUGH
  11. CEBION [Concomitant]
     Indication: PRODUCT USED FOR UNKNOWN INDICATION
     Route: 065
  12. THIAMINE. [Concomitant]
     Active Substance: THIAMINE
     Indication: PRODUCT USED FOR UNKNOWN INDICATION
     Dosage: 300 MG, QD
     Route: 065
  13. VITAMIN C [Concomitant]
     Active Substance: ASCORBIC ACID
     Indication: PRODUCT USED FOR UNKNOWN INDICATION
     Dosage: UNK
     Route: 065
  14. ASCORBIC ACID. [Concomitant]
     Active Substance: ASCORBIC ACID
     Indication: PRODUCT USED FOR UNKNOWN INDICATION
     Dosage: 500 MG, PRN
     Route: 065

REACTIONS (19)
  - Skin discolouration [Unknown]
  - Arrhythmia [Unknown]
  - Incorrect dose administered [Unknown]
  - Insomnia [Unknown]
  - Abdominal pain upper [Unknown]
  - Swelling face [Unknown]
  - Influenza [Unknown]
  - Somnolence [Unknown]
  - Cough [Unknown]
  - Dyspepsia [Unknown]
  - Disease recurrence [Unknown]
  - Dysphonia [Unknown]
  - Headache [Unknown]
  - Peripheral swelling [Unknown]
  - Platelet count decreased [Recovering/Resolving]
  - Pyrexia [Unknown]
  - Bronchitis [Unknown]
  - Malaise [Unknown]
  - Pneumonia [Unknown]

NARRATIVE: CASE EVENT DATE: 20160410
